FAERS Safety Report 24636989 (Version 1)
Quarter: 2024Q4

REPORT INFORMATION
  Report Type: Other
  Country: IT (occurrence: IT)
  Receive Date: 20241119
  Receipt Date: 20241119
  Transmission Date: 20250115
  Serious: Yes (Other)
  Sender: EYWA PHARMA INC.
  Company Number: IT-Eywa Pharma Inc.-2165367

PATIENT
  Age: 21 Year
  Sex: Female

DRUGS (13)
  1. VALPROIC ACID [Suspect]
     Active Substance: VALPROIC ACID
     Indication: Seizure
  2. LAMOTRIGINE [Concomitant]
     Active Substance: LAMOTRIGINE
  3. THYROID [Concomitant]
     Active Substance: LEVOTHYROXINE\LIOTHYRONINE
  4. CLOMIPRAMINE HYDROCHLORIDE [Concomitant]
     Active Substance: CLOMIPRAMINE HYDROCHLORIDE
  5. ATORVASTATIN CALCIUM [Concomitant]
     Active Substance: ATORVASTATIN CALCIUM
  6. Canrenoic-acid [Concomitant]
  7. FUROSEMIDE [Concomitant]
     Active Substance: FUROSEMIDE
  8. CARVEDILOL [Concomitant]
     Active Substance: CARVEDILOL
  9. SACUBITRIL\VALSARTAN [Concomitant]
     Active Substance: SACUBITRIL\VALSARTAN
  10. ENOXAPARIN SODIUM [Concomitant]
     Active Substance: ENOXAPARIN SODIUM
  11. PHENOBARBITAL [Concomitant]
     Active Substance: PHENOBARBITAL
  12. LACOSAMIDE [Concomitant]
     Active Substance: LACOSAMIDE
  13. BRIVARACETAM [Concomitant]
     Active Substance: BRIVARACETAM

REACTIONS (2)
  - Altered state of consciousness [Not Recovered/Not Resolved]
  - Thrombocytopenia [Not Recovered/Not Resolved]
